FAERS Safety Report 22234628 (Version 1)
Quarter: 2023Q2

REPORT INFORMATION
  Report Type: Spontaneous
  Country: US (occurrence: US)
  Receive Date: 20230420
  Receipt Date: 20230420
  Transmission Date: 20230722
  Serious: No
  Sender: FDA-Public Use
  Company Number: US-ROMARKLABS-2023-US-000003

PATIENT
  Age: 26 Year
  Sex: Female

DRUGS (4)
  1. ALINIA [Suspect]
     Active Substance: NITAZOXANIDE
     Indication: Gastrointestinal bacterial overgrowth
     Dosage: 1 TABLET TWICE DAILY
     Route: 048
     Dates: start: 20230313
  2. VITAMIN D [Concomitant]
     Active Substance: VITAMIN D NOS
     Indication: Vitamin supplementation
  3. MAGNESIUM [Concomitant]
     Active Substance: MAGNESIUM
     Indication: Vitamin supplementation
  4. VITAMIN B COMPLEX [Concomitant]
     Active Substance: CYANOCOBALAMIN\DEXPANTHENOL\NIACINAMIDE\PYRIDOXINE HYDROCHLORIDE\RIBOFLAVIN 5^-PHOSPHATE SODIUM\THIA
     Indication: Vitamin supplementation

REACTIONS (7)
  - Ocular icterus [Unknown]
  - Chromaturia [Unknown]
  - Back pain [Unknown]
  - Decreased appetite [Unknown]
  - Pollakiuria [Unknown]
  - Pollakiuria [Recovered/Resolved]
  - Diarrhoea [Recovered/Resolved]

NARRATIVE: CASE EVENT DATE: 20230313
